FAERS Safety Report 12633441 (Version 1)
Quarter: 2016Q3

REPORT INFORMATION
  Report Type: Spontaneous
  Country: US (occurrence: None)
  Receive Date: 20160808
  Receipt Date: 20160808
  Transmission Date: 20161109
  Serious: Yes (Hospitalization)
  Sender: FDA-Public Use
  Company Number: None

PATIENT
  Age: 68 Year
  Sex: Male

DRUGS (1)
  1. ATORVASTATIN [Suspect]
     Active Substance: ATORVASTATIN
     Indication: HYPERLIPIDAEMIA
     Route: 048
     Dates: start: 20160106, end: 20160602

REACTIONS (4)
  - Acute kidney injury [None]
  - Scrotal pain [None]
  - Incontinence [None]
  - Rhabdomyolysis [None]

NARRATIVE: CASE EVENT DATE: 20160602
